FAERS Safety Report 20565068 (Version 1)
Quarter: 2022Q1

REPORT INFORMATION
  Report Type: Spontaneous
  Country: BG (occurrence: None)
  Receive Date: 20220308
  Receipt Date: 20220308
  Transmission Date: 20220424
  Serious: Yes (Hospitalization, Other)
  Sender: FDA-Public Use
  Company Number: 2022A100088

PATIENT
  Age: 52 Year
  Sex: Female

DRUGS (4)
  1. BUDESONIDE\FORMOTEROL FUMARATE [Suspect]
     Active Substance: BUDESONIDE\FORMOTEROL FUMARATE
     Indication: Asthma
     Dosage: 160/4.5 MCG
     Route: 065
  2. BENRALIZUMAB [Suspect]
     Active Substance: BENRALIZUMAB
     Indication: Asthma
     Dosage: 30.0MG AS REQUIRED
     Route: 065
     Dates: start: 202103
  3. OMALIZUMAB [Concomitant]
     Active Substance: OMALIZUMAB
     Indication: Asthma
     Route: 058
  4. METHYLPREDNISOLONE [Concomitant]
     Active Substance: METHYLPREDNISOLONE
     Route: 065

REACTIONS (4)
  - Hepatitis C [Recovered/Resolved]
  - Asthma [Recovered/Resolved]
  - Steroid withdrawal syndrome [Recovered/Resolved]
  - Rib fracture [Unknown]

NARRATIVE: CASE EVENT DATE: 20180101
